FAERS Safety Report 5895428-7 (Version None)
Quarter: 2008Q3

REPORT INFORMATION
  Report Type: 
  Country: None (occurrence: None)
  Receive Date: 20080923
  Receipt Date: 20080923
  Transmission Date: 20090109
  Serious: No
  Sender: FDA-Public Use
  Company Number: None

PATIENT
  Sex: Female

DRUGS (1)
  1. PARNATE [Suspect]
     Dosage: 20MG QAM PO
     Route: 048
     Dates: start: 20080829, end: 20080910

REACTIONS (2)
  - AKATHISIA [None]
  - NERVOUSNESS [None]
